FAERS Safety Report 22225854 (Version 1)
Quarter: 2023Q2

REPORT INFORMATION
  Report Type: Spontaneous
  Country: US (occurrence: US)
  Receive Date: 20230419
  Receipt Date: 20230419
  Transmission Date: 20230722
  Serious: Yes (Hospitalization)
  Sender: FDA-Public Use
  Company Number: US-JNJFOC-20230433351

PATIENT
  Age: 47 Year
  Sex: Female

DRUGS (2)
  1. INVOKANA [Suspect]
     Active Substance: CANAGLIFLOZIN
     Indication: Type 2 diabetes mellitus
     Route: 048
  2. INVOKANA [Suspect]
     Active Substance: CANAGLIFLOZIN
     Route: 048
     Dates: start: 201407, end: 201408

REACTIONS (5)
  - Osteomyelitis [Unknown]
  - Foot amputation [Unknown]
  - Diabetic foot infection [Unknown]
  - Gangrene [Unknown]
  - Headache [Unknown]

NARRATIVE: CASE EVENT DATE: 20140803
